FAERS Safety Report 6666859-2 (Version None)
Quarter: 2010Q1

REPORT INFORMATION
  Report Type: 
  Country: None (occurrence: None)
  Receive Date: 20100331
  Receipt Date: 20100318
  Transmission Date: 20100710
  Serious: Yes (Hospitalization)
  Sender: FDA-Public Use
  Company Number: 1000012677

PATIENT
  Age: 84 Year
  Sex: Female
  Weight: 56 kg

DRUGS (3)
  1. MEMANTINE HCL [Suspect]
     Indication: DEMENTIA ALZHEIMER'S TYPE
     Dosage: 10 MG (10 MG, 1 IN 1 D), ORAL
     Route: 048
     Dates: start: 20090501, end: 20100219
  2. CAPTOPRIL [Concomitant]
  3. FENOFIBRATE [Concomitant]

REACTIONS (7)
  - ABNORMAL BEHAVIOUR [None]
  - AGGRESSION [None]
  - ANXIETY [None]
  - DISSOCIATIVE FUGUE [None]
  - DRUG INEFFECTIVE [None]
  - HALLUCINATION, VISUAL [None]
  - PERSECUTORY DELUSION [None]
